FAERS Safety Report 6524881-0 (Version None)
Quarter: 2009Q4

REPORT INFORMATION
  Report Type: 
  Country: None (occurrence: None)
  Receive Date: 20091228
  Receipt Date: 20091228
  Transmission Date: 20100525
  Serious: No
  Sender: FDA-Public Use
  Company Number: None

PATIENT
  Age: 51 Year
  Sex: Female
  Weight: 63.5036 kg

DRUGS (7)
  1. COLD REMEDY ORAL MIST [Suspect]
     Dosage: 3 DOSES - 1 DAY/3 DOSES
     Dates: start: 20091024, end: 20091025
  2. NEURONTIN [Concomitant]
  3. WELLBUTRIN [Concomitant]
  4. FROVATRIPTAN [Concomitant]
  5. FISH OIL [Concomitant]
  6. BLACK COHASH [Concomitant]
  7. HERB [Concomitant]

REACTIONS (2)
  - DYSGEUSIA [None]
  - HYPOAESTHESIA ORAL [None]
